FAERS Safety Report 9218807 (Version 1)
Quarter: 2013Q2

REPORT INFORMATION
  Report Type: Spontaneous
  Country: US (occurrence: US)
  Receive Date: 20130409
  Receipt Date: 20130409
  Transmission Date: 20140414
  Serious: Yes (Hospitalization)
  Sender: FDA-Public Use
  Company Number: US-JNJFOC-20130318229

PATIENT
  Age: 82 Year
  Sex: Male
  Weight: 88.45 kg

DRUGS (6)
  1. XARELTO [Suspect]
     Indication: CEREBROVASCULAR ACCIDENT PROPHYLAXIS
     Route: 048
     Dates: start: 201302, end: 20130326
  2. XARELTO [Suspect]
     Indication: ATRIAL FIBRILLATION
     Route: 048
     Dates: start: 201302, end: 20130326
  3. BABY ASPIRIN [Concomitant]
     Route: 065
  4. DIOVAN [Concomitant]
     Indication: HYPERTENSION
     Route: 065
     Dates: start: 2005
  5. CARDIZEM [Concomitant]
     Indication: HEART VALVE REPLACEMENT
     Route: 065
     Dates: start: 201108
  6. CARDIZEM [Concomitant]
     Indication: PULMONARY HYPERTENSION
     Route: 065
     Dates: start: 201108

REACTIONS (7)
  - Haemorrhage [Not Recovered/Not Resolved]
  - Haematochezia [Not Recovered/Not Resolved]
  - Hypotension [Unknown]
  - Haemoglobin decreased [Not Recovered/Not Resolved]
  - Dyspnoea [Not Recovered/Not Resolved]
  - Fatigue [Not Recovered/Not Resolved]
  - Lethargy [Unknown]
